FAERS Safety Report 4933455-4 (Version None)
Quarter: 2006Q1

REPORT INFORMATION
  Report Type: 
  Country: None (occurrence: None)
  Receive Date: 20060111
  Receipt Date: 20050328
  Transmission Date: 20060701
  Serious: No
  Sender: FDA-Public Use
  Company Number: A001-002-006441

PATIENT
  Sex: Male

DRUGS (1)
  1. ARICEPT [Suspect]
     Dosage: ORAL
     Route: 048

REACTIONS (3)
  - DELIRIUM [None]
  - FALL [None]
  - HIP FRACTURE [None]
